FAERS Safety Report 23250338 (Version 3)
Quarter: 2023Q4

REPORT INFORMATION
  Report Type: Spontaneous
  Country: JP (occurrence: None)
  Receive Date: 20231201
  Receipt Date: 20231219
  Transmission Date: 20240110
  Serious: Yes (Other)
  Sender: FDA-Public Use
  Company Number: 2022A315859

PATIENT
  Age: 585 Month
  Sex: Female
  Weight: 76 kg

DRUGS (8)
  1. LYNPARZA [Suspect]
     Active Substance: OLAPARIB
     Indication: Ovarian cancer recurrent
     Route: 048
     Dates: start: 20220630, end: 20220901
  2. LYNPARZA [Suspect]
     Active Substance: OLAPARIB
     Indication: Ovarian cancer recurrent
     Route: 048
     Dates: start: 20220929, end: 20230714
  3. LYNPARZA [Suspect]
     Active Substance: OLAPARIB
     Indication: Ovarian cancer recurrent
     Route: 048
     Dates: start: 20220708
  4. LYNPARZA [Suspect]
     Active Substance: OLAPARIB
     Indication: Ovarian cancer recurrent
     Route: 048
     Dates: start: 20230728
  5. NINJIN YOEITO [Concomitant]
     Indication: Anaemia
     Dates: start: 20220310
  6. HERBALS [Concomitant]
     Active Substance: HERBALS
     Indication: Neuropathy peripheral
     Route: 048
     Dates: start: 20220215, end: 20220804
  7. PRAVASTATIN SODIUM [Concomitant]
     Active Substance: PRAVASTATIN SODIUM
     Indication: Hyperlipidaemia
     Route: 048
     Dates: start: 20231207
  8. LYRICA [Concomitant]
     Active Substance: PREGABALIN
     Indication: Neuropathy peripheral
     Route: 048
     Dates: start: 20220215, end: 20220804

REACTIONS (4)
  - Anaemia [Recovered/Resolved]
  - Tumour marker increased [Unknown]
  - Decreased appetite [Unknown]
  - Faeces soft [Unknown]

NARRATIVE: CASE EVENT DATE: 20220801
